FAERS Safety Report 13999431 (Version 2)
Quarter: 2024Q1

REPORT INFORMATION
  Report Type: Other
  Country: US (occurrence: None)
  Receive Date: 20170922
  Receipt Date: 20240311
  Transmission Date: 20240410
  Serious: Yes (Other)
  Sender: FDA-Public Use
  Company Number: US-ROCHE-1992370

PATIENT

DRUGS (3)
  1. BEVACIZUMAB [Suspect]
     Active Substance: BEVACIZUMAB
     Indication: Renal cell carcinoma
     Dosage: DAYS 1 AND 15 OF A 28-DAY CYCLE.
     Route: 042
  2. CAPECITABINE [Suspect]
     Active Substance: CAPECITABINE
     Indication: Renal cell carcinoma
     Dosage: DAY 1 TO 21 OF A 28 DAY CYCLE
     Route: 048
  3. GEMCITABINE [Suspect]
     Active Substance: GEMCITABINE
     Indication: Renal cell carcinoma
     Dosage: OVER 30 MINUTES ON DAYS 1 AND 15
     Route: 042

REACTIONS (55)
  - Pain [Unknown]
  - Pain in extremity [Unknown]
  - Headache [Unknown]
  - Rash [Unknown]
  - Fatigue [Unknown]
  - Peripheral sensory neuropathy [Unknown]
  - Diarrhoea [Unknown]
  - Hyponatraemia [Unknown]
  - Hyperbilirubinaemia [Unknown]
  - Peripheral motor neuropathy [Unknown]
  - Hypertension [Unknown]
  - Device related thrombosis [Unknown]
  - Embolism [Unknown]
  - Hypernatraemia [Unknown]
  - Lymphopenia [Unknown]
  - Leukopenia [Unknown]
  - Neutropenia [Unknown]
  - Decreased appetite [Unknown]
  - Nausea [Unknown]
  - Dry skin [Unknown]
  - Proteinuria [Unknown]
  - Dyspnoea [Unknown]
  - Hyperglycaemia [Unknown]
  - Stomatitis [Unknown]
  - Epistaxis [Unknown]
  - Haemoptysis [Unknown]
  - Urogenital haemorrhage [Unknown]
  - Aspartate aminotransferase increased [Unknown]
  - Taste disorder [Unknown]
  - Alanine aminotransferase increased [Unknown]
  - Constipation [Unknown]
  - Blood creatinine increased [Unknown]
  - Pigmentation disorder [Unknown]
  - Vomiting [Unknown]
  - Hypoalbuminaemia [Unknown]
  - Oedema [Unknown]
  - Oral pain [Unknown]
  - Abdominal pain [Unknown]
  - Blood alkaline phosphatase increased [Unknown]
  - Cough [Unknown]
  - Dry mouth [Unknown]
  - Temperature intolerance [Unknown]
  - Hypocalcaemia [Unknown]
  - Alopecia [Unknown]
  - Nail disorder [Unknown]
  - Hyperkalaemia [Unknown]
  - Hyperhidrosis [Unknown]
  - Activated partial thromboplastin time prolonged [Unknown]
  - Night sweats [Unknown]
  - Dyspepsia [Unknown]
  - Hiccups [Unknown]
  - Insomnia [Unknown]
  - Pruritus [Unknown]
  - Anaemia [Unknown]
  - Thrombocytopenia [Unknown]
